FAERS Safety Report 4560099-9 (Version None)
Quarter: 2005Q1

REPORT INFORMATION
  Report Type: 
  Country: None (occurrence: None)
  Receive Date: 20050119
  Receipt Date: 20050107
  Transmission Date: 20050727
  Serious: Yes (Hospitalization)
  Sender: FDA-Public Use
  Company Number: 001-0981-M0001832

PATIENT
  Age: 60 Year
  Sex: Male
  Weight: 104.3273 kg

DRUGS (12)
  1. ATORVASTATIN (ATORVASTATIN) [Suspect]
     Indication: HYPERLIPIDAEMIA
     Dosage: 10 MG DAILY, ORAL; 80 MG DAILY, ORAL
     Route: 048
     Dates: start: 19980921, end: 19981115
  2. ATORVASTATIN (ATORVASTATIN) [Suspect]
     Indication: HYPERLIPIDAEMIA
     Dosage: 10 MG DAILY, ORAL; 80 MG DAILY, ORAL
     Route: 048
     Dates: start: 19981116
  3. FELODIPINE [Concomitant]
  4. HYRDOCHLOROTHIAZIDE (HYDROCHLOROTHIAZIDE) [Concomitant]
  5. FOLIC ACID [Concomitant]
  6. ATENOLOL [Concomitant]
  7. GLIPIZIDW (GLIPIZIDE) [Concomitant]
  8. BUPROPION (BUPROPION) [Concomitant]
  9. ISOSORBIDE MONONITRATE [Concomitant]
  10. CISAPRIDE (CISAPRIDE) [Concomitant]
  11. NITROGLYCERIN [Concomitant]
  12. OMEPRAZOLE [Concomitant]

REACTIONS (4)
  - BACK PAIN [None]
  - CONDITION AGGRAVATED [None]
  - DIABETIC NEUROPATHY [None]
  - PAIN IN EXTREMITY [None]
